FAERS Safety Report 23116496 (Version 2)
Quarter: 2023Q4

REPORT INFORMATION
  Report Type: Spontaneous
  Country: CN (occurrence: CN)
  Receive Date: 20231027
  Receipt Date: 20231103
  Transmission Date: 20240110
  Serious: Yes (Hospitalization, Other)
  Sender: FDA-Public Use
  Company Number: CN-002147023-NVSC2023CN226180

PATIENT
  Age: 68 Year
  Sex: Female
  Weight: 60 kg

DRUGS (5)
  1. OXCARBAZEPINE [Suspect]
     Active Substance: OXCARBAZEPINE
     Indication: Somatic symptom disorder
     Dosage: 0.15 G, BID
     Route: 048
     Dates: start: 20230929, end: 20231004
  2. CELECOXIB [Concomitant]
     Active Substance: CELECOXIB
     Indication: Rheumatoid arthritis
     Dosage: 200 MG, BID
     Route: 048
     Dates: start: 20230924, end: 20231004
  3. SODIUM CHLORIDE [Concomitant]
     Active Substance: SODIUM CHLORIDE
     Indication: Solvent sensitivity
     Dosage: 250 ML, QD
     Route: 041
     Dates: start: 20230924, end: 20231004
  4. IRBESARTAN [Concomitant]
     Active Substance: IRBESARTAN
     Indication: Product used for unknown indication
     Dosage: 150 MG
     Route: 048
  5. LIGUSTRAZINE HYDROCHLORIDE [Concomitant]
     Active Substance: LIGUSTRAZINE HYDROCHLORIDE
     Indication: Cardiovascular disorder
     Dosage: 40 MG, QD
     Route: 041
     Dates: start: 20230924, end: 20231004

REACTIONS (6)
  - Vomiting [Recovering/Resolving]
  - Dizziness [Recovering/Resolving]
  - Respiratory rate increased [Recovering/Resolving]
  - Hypertension [Recovering/Resolving]
  - Blood potassium decreased [Recovered/Resolved]
  - Product use in unapproved indication [Unknown]

NARRATIVE: CASE EVENT DATE: 20230929
